FAERS Safety Report 4277820-X (Version None)
Quarter: 2004Q1

REPORT INFORMATION
  Report Type: 
  Country: None (occurrence: None)
  Receive Date: 20040121
  Receipt Date: 20031028
  Transmission Date: 20041129
  Serious: Yes (Hospitalization)
  Sender: FDA-Public Use
  Company Number: A02200302878

PATIENT
  Age: 59 Year
  Sex: Female

DRUGS (4)
  1. ELOXATIN - (OXALIPLATIN) - POWDER - 5 MG/ML [Suspect]
     Indication: OVARIAN CANCER
     Dosage: 80 MG OTHER INTRAVENOUS NOS
     Route: 042
     Dates: start: 20030828, end: 20030828
  2. ZOLOFT [Suspect]
     Dosage: 1 DF OD ORAL
     Route: 048
  3. GEMZAR [Suspect]
     Indication: OVARIAN CANCER
     Dosage: 800 MG OTHER INTRAVENOUS NOS
     Route: 042
     Dates: start: 20030905, end: 20030905
  4. TAXOL [Concomitant]

REACTIONS (3)
  - BONE MARROW DEPRESSION [None]
  - HAEMATEMESIS [None]
  - PANCYTOPENIA [None]
